FAERS Safety Report 15918759 (Version 1)
Quarter: 2019Q1

REPORT INFORMATION
  Report Type: Spontaneous
  Country: FR (occurrence: FR)
  Receive Date: 20190205
  Receipt Date: 20190205
  Transmission Date: 20190417
  Serious: Yes (Hospitalization)
  Sender: FDA-Public Use
  Company Number: FR-PFIZER INC-FRWYE318620JAN06

PATIENT
  Age: 72 Year
  Sex: Male

DRUGS (22)
  1. TRIFLUCAN [Concomitant]
     Active Substance: FLUCONAZOLE
     Route: 065
  2. SOLU-MEDROL [Concomitant]
     Active Substance: METHYLPREDNISOLONE SODIUM SUCCINATE
     Route: 065
  3. MOPRAL [OMEPRAZOLE] [Concomitant]
     Route: 065
  4. MUCOMYST [ACETYLCYSTEINE] [Concomitant]
     Route: 065
  5. CORDARONE [Concomitant]
     Active Substance: AMIODARONE HYDROCHLORIDE
     Route: 065
  6. LASILIX [FUROSEMIDE] [Concomitant]
     Active Substance: FUROSEMIDE
     Route: 065
  7. ELISOR [Concomitant]
     Active Substance: PRAVASTATIN SODIUM
     Route: 065
  8. STILNOX [Concomitant]
     Active Substance: ZOLPIDEM TARTRATE
     Route: 065
  9. CIFLOX [CIPROFLOXACIN] [Suspect]
     Active Substance: CIPROFLOXACIN
     Indication: PNEUMONIA HAEMOPHILUS
     Dosage: 1500 MG, 1X/DAY
     Route: 048
     Dates: start: 20051020, end: 20051022
  10. DISCOTRINE [Concomitant]
     Active Substance: NITROGLYCERIN
     Route: 065
  11. DUSPATALIN [MEBEVERINE HYDROCHLORIDE] [Concomitant]
     Route: 065
  12. SPASFON [PHLOROGLUCINOL;TRIMETHYLPHLOROGLUCINOL] [Concomitant]
     Active Substance: PHLOROGLUCINOL\1,3,5-TRIMETHOXYBENZENE
     Route: 065
  13. BRICANYL [Concomitant]
     Active Substance: TERBUTALINE SULFATE
     Indication: BRONCHITIS CHRONIC
     Dosage: 2 DF, 1X/DAY
     Route: 055
     Dates: start: 20051020, end: 20051102
  14. TAZOCILLINE [Suspect]
     Active Substance: PIPERACILLIN SODIUM\TAZOBACTAM SODIUM
     Indication: PNEUMONIA HAEMOPHILUS
  15. GENTALLINE [Suspect]
     Active Substance: GENTAMICIN SULFATE
     Indication: PNEUMONIA HAEMOPHILUS
     Dosage: 160 MG, 1X/DAY
     Route: 030
     Dates: start: 20051022, end: 20051026
  16. IDEOS [Concomitant]
     Active Substance: CALCIUM CARBONATE\CHOLECALCIFEROL
     Route: 065
  17. PLAVIX [Concomitant]
     Active Substance: CLOPIDOGREL BISULFATE
     Route: 065
  18. PRIMPERAN [Concomitant]
     Active Substance: METOCLOPRAMIDE HYDROCHLORIDE
     Route: 065
  19. COZAAR [Suspect]
     Active Substance: LOSARTAN POTASSIUM
     Indication: ESSENTIAL HYPERTENSION
     Dosage: 50 MG, 1X/DAY
     Route: 048
     Dates: end: 20051102
  20. DI-ANTALVIC [Concomitant]
     Active Substance: ACETAMINOPHEN\PROPOXYPHENE HYDROCHLORIDE
     Route: 065
  21. ATROVENT [Concomitant]
     Active Substance: IPRATROPIUM BROMIDE
     Indication: BRONCHITIS CHRONIC
     Dosage: 2 DF, 1X/DAY
     Route: 055
     Dates: start: 20051020, end: 20051102
  22. TAZOCILLINE [Suspect]
     Active Substance: PIPERACILLIN SODIUM\TAZOBACTAM SODIUM
     Indication: PSEUDOMONAS INFECTION
     Dosage: 4 G, 1X/DAY
     Route: 042
     Dates: start: 20051020, end: 20051102

REACTIONS (4)
  - Anuria [Recovered/Resolved]
  - Anxiety [Recovered/Resolved]
  - Hypersomnia [Recovered/Resolved]
  - Acute kidney injury [Recovered/Resolved]

NARRATIVE: CASE EVENT DATE: 20051101
